FAERS Safety Report 13089295 (Version 5)
Quarter: 2017Q1

REPORT INFORMATION
  Report Type: Spontaneous
  Country: IT (occurrence: IT)
  Receive Date: 20170105
  Receipt Date: 20170303
  Transmission Date: 20170428
  Serious: Yes (Hospitalization, Other)
  Sender: FDA-Public Use
  Company Number: IT-PFIZER INC-2017002612

PATIENT
  Age: 84 Year
  Sex: Male

DRUGS (7)
  1. DASABUVIR [Interacting]
     Active Substance: DASABUVIR
     Indication: HEPATIC CIRRHOSIS
     Dosage: UNK (RECEIVED 3D PLUS RBV AT THE STANDARD DOSAGE FOR TREATMENT-NA?VE HCV GT1B PATIENTS)
     Dates: start: 20160206, end: 20160219
  2. RITONAVIR. [Interacting]
     Active Substance: RITONAVIR
     Indication: HEPATIC CIRRHOSIS
     Dosage: UNK (RECEIVED 3D PLUS RBV AT THE STANDARD DOSAGE FOR TREATMENT-NA?VE HCV GT1B PATIENTS)
     Dates: start: 20160206, end: 20160219
  3. PARITAPREVIR [Interacting]
     Active Substance: PARITAPREVIR
     Indication: HEPATIC CIRRHOSIS
     Dosage: UNK (RECEIVED 3D PLUS RBV AT THE STANDARD DOSAGE FOR TREATMENT-NA?VE HCV GT1B PATIENTS)
     Dates: start: 20160206, end: 20160219
  4. CARVEDILOL. [Interacting]
     Active Substance: CARVEDILOL
     Dosage: 6.25 MG, 2X/DAY
  5. RIBAVIRIN. [Interacting]
     Active Substance: RIBAVIRIN
     Indication: HEPATIC CIRRHOSIS
     Dosage: UNK (RECEIVED 3D PLUS RBV AT THE STANDARD DOSAGE FOR TREATMENT-NA?VE HCV GT1B PATIENTS)
     Dates: start: 20160206, end: 20160219
  6. OMBITASVIR [Interacting]
     Active Substance: OMBITASVIR
     Indication: HEPATIC CIRRHOSIS
     Dosage: UNK (RECEIVED 3D PLUS RBV AT THE STANDARD DOSAGE FOR TREATMENT-NA?VE HCV GT1B PATIENTS)
     Dates: start: 20160206, end: 20160219
  7. PANTOPRAZOLE [Suspect]
     Active Substance: PANTOPRAZOLE SODIUM
     Dosage: 40 MG, 1X/DAY

REACTIONS (4)
  - Drug interaction [Unknown]
  - Renal injury [Recovering/Resolving]
  - Acute hepatic failure [Recovering/Resolving]
  - Ascites [Recovering/Resolving]
